FAERS Safety Report 20154562 (Version 3)
Quarter: 2022Q3

REPORT INFORMATION
  Report Type: Spontaneous
  Country: FR (occurrence: FR)
  Receive Date: 20211207
  Receipt Date: 20220811
  Transmission Date: 20221027
  Serious: Yes (Other)
  Sender: FDA-Public Use
  Company Number: FR-Rhythm Pharmaceuticals, Inc.-2021RHM000077

PATIENT
  Age: 5 Year
  Sex: Female
  Weight: 35 kg

DRUGS (9)
  1. IMCIVREE [Suspect]
     Active Substance: SETMELANOTIDE
     Indication: Gene mutation
     Route: 058
     Dates: start: 20211006, end: 20211121
  2. IMCIVREE [Suspect]
     Active Substance: SETMELANOTIDE
     Route: 058
  3. MINIRIN [Concomitant]
     Active Substance: DESMOPRESSIN ACETATE
     Indication: Diabetes insipidus
     Route: 048
     Dates: start: 2017
  4. LEVOTHYROXINE SODIUM [Concomitant]
     Active Substance: LEVOTHYROXINE SODIUM
     Indication: Blood thyroid stimulating hormone decreased
     Route: 048
     Dates: start: 2017
  5. SOMATROPIN [Concomitant]
     Active Substance: SOMATROPIN
     Indication: Product used for unknown indication
     Route: 058
     Dates: start: 2017
  6. VITAMIN C [Concomitant]
     Active Substance: ASCORBIC ACID
     Indication: Product used for unknown indication
     Route: 048
     Dates: start: 2017
  7. CHOLECALCIFEROL [Concomitant]
     Active Substance: CHOLECALCIFEROL
     Indication: Product used for unknown indication
     Route: 048
     Dates: start: 2017
  8. SODIUM FEREDETATE [Concomitant]
     Active Substance: SODIUM FEREDETATE
     Indication: Blood growth hormone decreased
     Route: 048
     Dates: start: 2017
  9. SODIUM FEREDETATE [Concomitant]
     Active Substance: SODIUM FEREDETATE
     Indication: Malabsorption

REACTIONS (9)
  - Malaise [Recovered/Resolved]
  - Fluid intake reduced [Recovered/Resolved]
  - Dysphagia [Recovered/Resolved]
  - Hypersensitivity [Recovered/Resolved]
  - Discomfort [Recovered/Resolved]
  - Off label use [Recovered/Resolved]
  - Injection site rash [Recovered/Resolved]
  - Rash erythematous [Recovered/Resolved]
  - Asthenia [Recovered/Resolved]

NARRATIVE: CASE EVENT DATE: 20211001
